FAERS Safety Report 6830063-5 (Version None)
Quarter: 2010Q3

REPORT INFORMATION
  Report Type: 
  Country: None (occurrence: None)
  Receive Date: 20100711
  Receipt Date: 20100506
  Transmission Date: 20110219
  Serious: No
  Sender: FDA-Public Use
  Company Number: US-ALLERGAN-1005978US

PATIENT
  Sex: Female

DRUGS (3)
  1. TAZORAC [Suspect]
     Indication: ACNE
     Dosage: UNK
     Dates: start: 20100301
  2. LATISSE [Suspect]
     Indication: GROWTH OF EYELASHES
     Dosage: 1 GTT, QPM
     Dates: start: 20100415
  3. TREXIMET [Concomitant]
     Indication: MIGRAINE

REACTIONS (1)
  - SKIN HYPERPIGMENTATION [None]
